FAERS Safety Report 14101841 (Version 1)
Quarter: 2017Q4

REPORT INFORMATION
  Report Type: Spontaneous
  Country: US (occurrence: US)
  Receive Date: 20171018
  Receipt Date: 20171018
  Transmission Date: 20180321
  Serious: No
  Sender: FDA-Public Use
  Company Number: US-ADAREPHARM-2017-US-000005

PATIENT
  Age: 15 Year
  Sex: Female
  Weight: 90 kg

DRUGS (5)
  1. CALCIUM [Concomitant]
     Active Substance: CALCIUM
     Indication: HYPOCALCAEMIA
     Dosage: 5 MG/KG/H
     Route: 042
  2. KCL [Suspect]
     Active Substance: POTASSIUM CHLORIDE
     Indication: HYPOKALAEMIA
     Dosage: 80 MEQ
  3. CALCITRIOL. [Concomitant]
     Active Substance: CALCITRIOL
     Indication: HYPOCALCAEMIA
  4. CALCIUM CARBONATE. [Concomitant]
     Active Substance: CALCIUM CARBONATE
     Dosage: ELEMENTAL CALCIUM
  5. MAGNESIUM PROTEIN COMPLEX [Concomitant]
     Dosage: ELEMENTAL MG

REACTIONS (1)
  - Drug ineffective [Recovered/Resolved]
